FAERS Safety Report 18781968 (Version 1)
Quarter: 2021Q1

REPORT INFORMATION
  Report Type: Spontaneous
  Country: US (occurrence: US)
  Receive Date: 20210125
  Receipt Date: 20210125
  Transmission Date: 20210419
  Serious: No
  Sender: FDA-Public Use
  Company Number: US-ALLERGAN-2014299US

PATIENT
  Age: 69 Year
  Sex: Male

DRUGS (11)
  1. LOSARTAN. [Concomitant]
     Active Substance: LOSARTAN
  2. FUROSEMIDE. [Concomitant]
     Active Substance: FUROSEMIDE
  3. DOXAZOSIN [Concomitant]
     Active Substance: DOXAZOSIN MESYLATE
  4. GLYBURIDE. [Concomitant]
     Active Substance: GLYBURIDE
  5. PROAIR HFA [Concomitant]
     Active Substance: ALBUTEROL SULFATE
     Indication: ASTHMA
  6. METOPROLOL. [Concomitant]
     Active Substance: METOPROLOL
     Indication: DRY EYE
  7. FINASTERIDE. [Concomitant]
     Active Substance: FINASTERIDE
  8. OMEPRAZOLE. [Concomitant]
     Active Substance: OMEPRAZOLE
  9. INSULIN [Concomitant]
     Active Substance: INSULIN NOS
  10. RESTASIS [Suspect]
     Active Substance: CYCLOSPORINE
     Indication: DRY EYE
     Dosage: UNK
  11. LEVOTHYROXINE. [Concomitant]
     Active Substance: LEVOTHYROXINE

REACTIONS (3)
  - Limb injury [Unknown]
  - Face injury [Unknown]
  - Fall [Recovered/Resolved]

NARRATIVE: CASE EVENT DATE: 20150529
